FAERS Safety Report 8986781 (Version 2)
Quarter: 2017Q2

REPORT INFORMATION
  Report Type: Report from Study
  Country: BR (occurrence: BR)
  Receive Date: 20121227
  Receipt Date: 20170501
  Transmission Date: 20170830
  Serious: Yes (Death, Hospitalization, Other)
  Sender: FDA-Public Use
  Company Number: PHHO2012BR015615

PATIENT
  Age: 65 Year
  Sex: Male
  Weight: 80 kg

DRUGS (9)
  1. TACROLIMUS. [Suspect]
     Active Substance: TACROLIMUS
     Dosage: 4 MG, UNK
     Route: 048
     Dates: start: 20121201, end: 20121203
  2. PREDNISONE. [Suspect]
     Active Substance: PREDNISONE
     Dosage: 20 MG, UNK
     Route: 048
     Dates: start: 20121124, end: 20121207
  3. MYFORTIC [Suspect]
     Active Substance: MYCOPHENOLATE SODIUM
     Indication: RENAL TRANSPLANT
     Dosage: 720 MG, BID
     Route: 048
     Dates: start: 20120925, end: 20121207
  4. PREDNISONE. [Suspect]
     Active Substance: PREDNISONE
     Indication: RENAL TRANSPLANT
     Dosage: 45 MG, BID (20 MG AND 25 MG 2XDAY)
     Route: 048
     Dates: start: 20120924, end: 20121121
  5. TACROLIMUS. [Suspect]
     Active Substance: TACROLIMUS
     Dosage: 3 MG, BID
     Route: 048
     Dates: start: 20121204, end: 20121207
  6. NO TREATMENT RECEIVED [Suspect]
     Active Substance: UNSPECIFIED INGREDIENT
     Indication: RENAL TRANSPLANT
     Dosage: NO TREATMENT
     Route: 065
  7. TACROLIMUS. [Suspect]
     Active Substance: TACROLIMUS
     Indication: RENAL TRANSPLANT
     Dosage: 5 MG, BID
     Route: 048
     Dates: start: 20120930, end: 20121120
  8. MYFORTIC [Suspect]
     Active Substance: MYCOPHENOLATE SODIUM
     Dosage: 720 MG, BID
     Route: 048
     Dates: end: 20121207
  9. MYFORTIC [Suspect]
     Active Substance: MYCOPHENOLATE SODIUM
     Dosage: 720 MG, BID
     Route: 048
     Dates: end: 20121018

REACTIONS (5)
  - Metabolic disorder [Recovered/Resolved]
  - Respiratory distress [Fatal]
  - Strongyloidiasis [Fatal]
  - Cytomegalovirus infection [Recovered/Resolved]
  - Arteriovenous fistula site infection [Recovering/Resolving]

NARRATIVE: CASE EVENT DATE: 20121015
